FAERS Safety Report 8880173 (Version 2)
Quarter: 2012Q4

REPORT INFORMATION
  Report Type: 
  Country: CA (occurrence: CA)
  Receive Date: 20121031
  Receipt Date: 20121114
  Transmission Date: 20130627
  Serious: Yes (Other)
  Sender: FDA-Public Use
  Company Number: CA-ROCHE-1151110

PATIENT
  Sex: Male

DRUGS (3)
  1. LUCENTIS [Suspect]
     Indication: RETINAL VEIN OCCLUSION
     Route: 050
     Dates: start: 20111117
  2. LUCENTIS [Suspect]
     Route: 050
     Dates: start: 20120118
  3. LUCENTIS [Suspect]
     Route: 050
     Dates: start: 20120410

REACTIONS (1)
  - Macular oedema [Recovering/Resolving]
